FAERS Safety Report 5239841-X (Version None)
Quarter: 2007Q1

REPORT INFORMATION
  Report Type: 
  Country: None (occurrence: None)
  Receive Date: 20070216
  Receipt Date: 20070201
  Transmission Date: 20070707
  Serious: Yes (Hospitalization)
  Sender: FDA-Public Use
  Company Number: HK-ELI_LILLY_AND_COMPANY-HK200702001113

PATIENT
  Age: 67 Year
  Sex: Male

DRUGS (2)
  1. GEMCITABINE HCL [Suspect]
     Indication: NASOPHARYNGEAL CANCER
     Dates: start: 20070123
  2. OXALIPLATIN [Suspect]
     Indication: NASOPHARYNGEAL CANCER
     Dates: start: 20070124

REACTIONS (1)
  - EPISTAXIS [None]
